FAERS Safety Report 6643135-5 (Version None)
Quarter: 2010Q1

REPORT INFORMATION
  Report Type: 
  Country: None (occurrence: None)
  Receive Date: 20100319
  Receipt Date: 20100309
  Transmission Date: 20100710
  Serious: Yes (Other)
  Sender: FDA-Public Use
  Company Number: PHHY2009US56237

PATIENT
  Age: 62 Year
  Sex: Male

DRUGS (1)
  1. GLEEVEC [Suspect]
     Indication: GASTROINTESTINAL STROMAL TUMOUR
     Dosage: 400 MG DAILY
     Route: 048
     Dates: start: 20090925

REACTIONS (18)
  - ABDOMINAL PAIN UPPER [None]
  - ANAEMIA [None]
  - ARTHRALGIA [None]
  - ASTHENIA [None]
  - BLOOD PHOSPHORUS DECREASED [None]
  - CATARACT [None]
  - CONJUNCTIVAL HAEMORRHAGE [None]
  - DIARRHOEA [None]
  - EYE HAEMORRHAGE [None]
  - EYE PAIN [None]
  - FATIGUE [None]
  - HEAT RASH [None]
  - HEPATIC HAEMORRHAGE [None]
  - HYPOAESTHESIA [None]
  - MYALGIA [None]
  - NAUSEA [None]
  - PARAESTHESIA [None]
  - RASH [None]
